FAERS Safety Report 5343939-5 (Version None)
Quarter: 2007Q2

REPORT INFORMATION
  Report Type: 
  Country: None (occurrence: None)
  Receive Date: 20070531
  Receipt Date: 20070531
  Transmission Date: 20071010
  Serious: Yes (Disabling)
  Sender: FDA-Public Use
  Company Number: None

PATIENT
  Sex: Male
  Weight: 32.2054 kg

DRUGS (1)
  1. DAYTRANA [Suspect]
     Indication: ATTENTION DEFICIT/HYPERACTIVITY DISORDER
     Dosage: DAILY TOP
     Route: 061
     Dates: start: 20060920, end: 20070522

REACTIONS (3)
  - APPLICATION SITE RASH [None]
  - DERMATITIS CONTACT [None]
  - DRUG HYPERSENSITIVITY [None]
